FAERS Safety Report 24183205 (Version 1)
Quarter: 2024Q3

REPORT INFORMATION
  Report Type: Spontaneous
  Country: US (occurrence: None)
  Receive Date: 20240806
  Receipt Date: 20240806
  Transmission Date: 20241016
  Serious: No
  Sender: Public
  Company Number: None

PATIENT
  Age: 7 Year
  Sex: Female

DRUGS (12)
  1. VIGABATRIN [Suspect]
     Active Substance: VIGABATRIN
     Indication: Partial seizures
  2. VIGABATRIN [Suspect]
     Active Substance: VIGABATRIN
     Indication: Partial seizures
  3. CLONAZEPAM [Concomitant]
     Active Substance: CLONAZEPAM
  4. ONDANSETRON HYDROCHLORIDE [Concomitant]
     Active Substance: ONDANSETRON HYDROCHLORIDE
  5. EVEROLIMUS [Concomitant]
     Active Substance: EVEROLIMUS
  6. CLOBAZAM [Concomitant]
     Active Substance: CLOBAZAM
  7. ALBUTEROL [Concomitant]
     Active Substance: ALBUTEROL
  8. KEPPRA [Concomitant]
     Active Substance: LEVETIRACETAM
  9. LANSOPRAZOLE [Concomitant]
     Active Substance: LANSOPRAZOLE
  10. CETIRIZINE HCL CHILDRENS [Concomitant]
  11. VALTOCO 10 MG DOSE [Concomitant]
  12. PREVACID [Concomitant]
     Active Substance: LANSOPRAZOLE

REACTIONS (5)
  - Abdominal pain upper [None]
  - Nausea [None]
  - Abdominal discomfort [None]
  - Decreased appetite [None]
  - Stomatitis [None]

NARRATIVE: CASE EVENT DATE: 20240805
